FAERS Safety Report 9368578 (Version 1)
Quarter: 2013Q2

REPORT INFORMATION
  Report Type: Spontaneous
  Country: CA (occurrence: CA)
  Receive Date: 20130626
  Receipt Date: 20130626
  Transmission Date: 20140414
  Serious: Yes (Other)
  Sender: FDA-Public Use
  Company Number: CA-ROCHE-1238362

PATIENT
  Sex: Male

DRUGS (3)
  1. CELLCEPT [Suspect]
     Indication: LIVER TRANSPLANT
     Route: 065
     Dates: start: 2012
  2. TACROLIMUS [Concomitant]
     Indication: LIVER TRANSPLANT
     Route: 065
  3. PENICILLIN VK [Concomitant]
     Route: 065

REACTIONS (2)
  - Genital hypoaesthesia [Not Recovered/Not Resolved]
  - Penis disorder [Not Recovered/Not Resolved]
